FAERS Safety Report 5193445-6 (Version None)
Quarter: 2006Q4

REPORT INFORMATION
  Report Type: 
  Country: None (occurrence: None)
  Receive Date: 20061228
  Receipt Date: 20060420
  Transmission Date: 20070319
  Serious: No
  Sender: FDA-Public Use
  Company Number: US-GLAXOSMITHKLINE-A0602662A

PATIENT
  Age: 59 Year
  Sex: Female

DRUGS (2)
  1. FLONASE [Suspect]
     Dosage: 2SPR PER DAY
     Route: 045
     Dates: start: 20060401, end: 20060419
  2. NO CONCURRENT MEDICATION [Concomitant]

REACTIONS (2)
  - DYSPHONIA [None]
  - INCREASED UPPER AIRWAY SECRETION [None]
